FAERS Safety Report 5426141-8 (Version None)
Quarter: 2007Q3

REPORT INFORMATION
  Report Type: 
  Country: None (occurrence: None)
  Receive Date: 20070827
  Receipt Date: 20070820
  Transmission Date: 20080115
  Serious: Yes (Death, Other)
  Sender: FDA-Public Use
  Company Number: CA-ELI_LILLY_AND_COMPANY-CA200708004873

PATIENT
  Age: 43 Year
  Sex: Female

DRUGS (1)
  1. OLANZAPINE [Suspect]

REACTIONS (4)
  - DEATH [None]
  - DRUG LEVEL ABOVE THERAPEUTIC [None]
  - DRUG TOXICITY [None]
  - KETOACIDOSIS [None]
